FAERS Safety Report 8083866-6 (Version None)
Quarter: 2012Q1

REPORT INFORMATION
  Report Type: 
  Country: None (occurrence: None)
  Receive Date: 20120128
  Receipt Date: 20110207
  Transmission Date: 20120608
  Serious: No
  Sender: FDA-Public Use
  Company Number: US-ABBOTT-11P-163-0703155-00

PATIENT
  Sex: Female
  Weight: 99.88 kg

DRUGS (2)
  1. HUMIRA [Suspect]
     Indication: PSORIASIS
     Dosage: TOOK 2 HUMIRA PENS FOR LOADING DOSE
     Dates: start: 20110107
  2. HUMIRA [Suspect]
     Dates: end: 20101001

REACTIONS (1)
  - INCORRECT DOSE ADMINISTERED [None]
